FAERS Safety Report 13825249 (Version 1)
Quarter: 2017Q3

REPORT INFORMATION
  Report Type: Spontaneous
  Country: US (occurrence: US)
  Receive Date: 20170801
  Receipt Date: 20170801
  Transmission Date: 20171127
  Serious: Yes (Hospitalization)
  Sender: FDA-Public Use
  Company Number: None

PATIENT
  Age: 59 Year
  Sex: Male

DRUGS (2)
  1. JADENU [Suspect]
     Active Substance: DEFERASIROX
     Indication: IRON METABOLISM DISORDER
     Dosage: DOSE - 3 TABS (180MG) DAILY PO
     Route: 048
     Dates: start: 201605
  2. JADENU [Suspect]
     Active Substance: DEFERASIROX

REACTIONS (4)
  - Dyspnoea [None]
  - Weight decreased [None]
  - Skin discolouration [None]
  - Drug dose omission [None]

NARRATIVE: CASE EVENT DATE: 201707
